FAERS Safety Report 5367455-X (Version None)
Quarter: 2007Q2

REPORT INFORMATION
  Report Type: 
  Country: None (occurrence: None)
  Receive Date: 20070620
  Receipt Date: 20070620
  Transmission Date: 20071010
  Serious: No
  Sender: FDA-Public Use
  Company Number: None

PATIENT
  Age: 54 Year
  Sex: Female
  Weight: 90.2658 kg

DRUGS (2)
  1. AMLODIPINE BESYLATE 5MG (NORVASC GENERIC) [Suspect]
     Indication: HYPERTENSION
     Dosage: ONE QD
  2. SIMVISTATIN 20MG [Suspect]
     Indication: HYPERLIPIDAEMIA
     Dosage: ONE QD

REACTIONS (3)
  - DRUG INTOLERANCE [None]
  - DRY MOUTH [None]
  - THIRST [None]
